FAERS Safety Report 14833793 (Version 1)
Quarter: 2018Q2

REPORT INFORMATION
  Report Type: Spontaneous
  Country: US (occurrence: US)
  Receive Date: 20180501
  Receipt Date: 20180501
  Transmission Date: 20180711
  Serious: No
  Sender: FDA-Public Use
  Company Number: US-ROCHE-2005574

PATIENT
  Sex: Male

DRUGS (1)
  1. AVASTIN [Suspect]
     Active Substance: BEVACIZUMAB
     Indication: MACULAR OEDEMA
     Dosage: STRENGTH: 25 MG/ML
     Route: 050
     Dates: start: 20170628

REACTIONS (3)
  - Intentional product use issue [Unknown]
  - Off label use [Unknown]
  - Cataract [Unknown]
